FAERS Safety Report 13857495 (Version 1)
Quarter: 2017Q3

REPORT INFORMATION
  Report Type: Report from Study
  Country: BR (occurrence: BR)
  Receive Date: 20170810
  Receipt Date: 20170810
  Transmission Date: 20171127
  Serious: Yes (Other)
  Sender: FDA-Public Use
  Company Number: PHHY2017BR118150

PATIENT
  Sex: Male
  Weight: 110 kg

DRUGS (1)
  1. TRAVATAN Z [Suspect]
     Active Substance: TRAVOPROST
     Indication: PROPHYLAXIS
     Dosage: 1 DRP, BID (0.004) IN EACH EYE
     Route: 047

REACTIONS (3)
  - Cardiomyopathy [Unknown]
  - Malaise [Unknown]
  - Dizziness postural [Unknown]
